FAERS Safety Report 17397177 (Version 1)
Quarter: 2020Q1

REPORT INFORMATION
  Report Type: Spontaneous
  Country: US (occurrence: US)
  Receive Date: 20200210
  Receipt Date: 20200210
  Transmission Date: 20200409
  Serious: Yes (Death)
  Sender: FDA-Public Use
  Company Number: US-ROCHE-2545759

PATIENT
  Age: 80 Year
  Sex: Female

DRUGS (1)
  1. ACTIVASE [Suspect]
     Active Substance: ALTEPLASE
     Indication: PULMONARY EMBOLISM
     Dosage: ONGOING NO?STRENGTH: 100 MG
     Route: 042
     Dates: start: 20200128

REACTIONS (2)
  - Death [Fatal]
  - Product quality issue [Unknown]

NARRATIVE: CASE EVENT DATE: 20200128
